FAERS Safety Report 11234058 (Version 1)
Quarter: 2015Q3

REPORT INFORMATION
  Report Type: Spontaneous
  Country: US (occurrence: US)
  Receive Date: 20150702
  Receipt Date: 20150702
  Transmission Date: 20151125
  Serious: Yes (Hospitalization, Other)
  Sender: FDA-Public Use
  Company Number: US-ROCHE-1601676

PATIENT
  Age: 44 Year
  Sex: Male

DRUGS (1)
  1. ACTEMRA [Suspect]
     Active Substance: TOCILIZUMAB
     Indication: RHEUMATOID ARTHRITIS
     Dosage: EVERY OTHER WEEK
     Route: 058

REACTIONS (6)
  - Diverticular perforation [Unknown]
  - Diverticulitis [Not Recovered/Not Resolved]
  - Abscess [Unknown]
  - Diarrhoea [Unknown]
  - Vomiting [Unknown]
  - Nausea [Unknown]
